FAERS Safety Report 6531791-1 (Version None)
Quarter: 2010Q1

REPORT INFORMATION
  Report Type: 
  Country: None (occurrence: None)
  Receive Date: 20100108
  Receipt Date: 20091228
  Transmission Date: 20100710
  Serious: Yes (Hospitalization, Other)
  Sender: FDA-Public Use
  Company Number: B0581567A

PATIENT
  Age: 50 Year
  Sex: Female

DRUGS (2)
  1. PROPRANOLOL [Suspect]
     Dosage: 5.2G CUMULATIVE DOSE
  2. BENZODIAZEPINE [Suspect]

REACTIONS (7)
  - CARDIAC ARREST [None]
  - CONDITION AGGRAVATED [None]
  - HEART RATE DECREASED [None]
  - LOSS OF CONSCIOUSNESS [None]
  - OVERDOSE [None]
  - RESPIRATORY FAILURE [None]
  - SINUS BRADYCARDIA [None]
